FAERS Safety Report 21044250 (Version 3)
Quarter: 2023Q1

REPORT INFORMATION
  Report Type: Other
  Country: JP (occurrence: None)
  Receive Date: 20220705
  Receipt Date: 20230124
  Transmission Date: 20230417
  Serious: Yes (Hospitalization)
  Sender: FDA-Public Use
  Company Number: JP-ROCHE-3129543

PATIENT
  Age: 50 Year
  Sex: Male
  Weight: 64 kg

DRUGS (33)
  1. RITUXIMAB [Suspect]
     Active Substance: RITUXIMAB
     Indication: Liver transplant
     Route: 041
     Dates: start: 20201208, end: 20201208
  2. MYCOPHENOLATE MOFETIL [Suspect]
     Active Substance: MYCOPHENOLATE MOFETIL
     Indication: Liver transplant
     Route: 048
     Dates: start: 20201224, end: 20201225
  3. MYCOPHENOLATE MOFETIL [Suspect]
     Active Substance: MYCOPHENOLATE MOFETIL
     Route: 048
     Dates: start: 20201226, end: 20201227
  4. MYCOPHENOLATE MOFETIL [Suspect]
     Active Substance: MYCOPHENOLATE MOFETIL
     Route: 048
     Dates: start: 20201228, end: 20210104
  5. MYCOPHENOLATE MOFETIL [Suspect]
     Active Substance: MYCOPHENOLATE MOFETIL
     Route: 048
     Dates: start: 20210105, end: 20210105
  6. MYCOPHENOLATE MOFETIL [Suspect]
     Active Substance: MYCOPHENOLATE MOFETIL
     Route: 048
     Dates: start: 20210702, end: 20210930
  7. MYCOPHENOLATE MOFETIL [Suspect]
     Active Substance: MYCOPHENOLATE MOFETIL
     Route: 048
     Dates: start: 20211001
  8. PROGRAF [Suspect]
     Active Substance: TACROLIMUS
     Indication: Liver transplant
     Route: 048
     Dates: start: 20201225, end: 20201226
  9. PROGRAF [Suspect]
     Active Substance: TACROLIMUS
     Route: 048
     Dates: start: 20201227, end: 20201230
  10. PROGRAF [Suspect]
     Active Substance: TACROLIMUS
     Route: 048
     Dates: start: 20201231, end: 20210110
  11. PROGRAF [Suspect]
     Active Substance: TACROLIMUS
     Route: 048
     Dates: start: 20210111, end: 20210304
  12. PROGRAF [Suspect]
     Active Substance: TACROLIMUS
     Route: 048
     Dates: start: 20210305
  13. SOLU-CORTEF [Concomitant]
     Active Substance: HYDROCORTISONE SODIUM SUCCINATE
     Route: 042
     Dates: start: 20201208, end: 20201208
  14. DIPHENHYDRAMINE [Concomitant]
     Active Substance: DIPHENHYDRAMINE
     Route: 048
     Dates: start: 20201208, end: 20201208
  15. ACETAMINOPHEN [Concomitant]
     Active Substance: ACETAMINOPHEN
     Route: 048
     Dates: start: 20201208, end: 20201208
  16. SOLU-MEDROL [Concomitant]
     Active Substance: METHYLPREDNISOLONE SODIUM SUCCINATE
     Indication: Liver transplant
     Route: 042
     Dates: start: 20201223, end: 20201223
  17. SOLU-MEDROL [Concomitant]
     Active Substance: METHYLPREDNISOLONE SODIUM SUCCINATE
     Route: 042
     Dates: start: 20201224, end: 20201230
  18. PREDNISOLONE [Concomitant]
     Active Substance: PREDNISOLONE
     Indication: Liver transplant
     Route: 048
     Dates: start: 20201231, end: 20210129
  19. PREDNISOLONE [Concomitant]
     Active Substance: PREDNISOLONE
     Route: 048
     Dates: start: 20210130, end: 20210212
  20. PREDNISOLONE [Concomitant]
     Active Substance: PREDNISOLONE
     Route: 048
     Dates: start: 20210213
  21. PREDNISOLONE [Concomitant]
     Active Substance: PREDNISOLONE
     Route: 048
     Dates: start: 20210326, end: 20210513
  22. PREDNISOLONE [Concomitant]
     Active Substance: PREDNISOLONE
     Route: 048
     Dates: start: 20210514, end: 20210701
  23. PREDNISOLONE [Concomitant]
     Active Substance: PREDNISOLONE
     Route: 048
     Dates: start: 20210702, end: 20210729
  24. PREDNISOLONE [Concomitant]
     Active Substance: PREDNISOLONE
     Route: 048
     Dates: start: 20210730, end: 20210902
  25. FLUCONAZOLE [Concomitant]
     Active Substance: FLUCONAZOLE
     Route: 048
     Dates: start: 20201231, end: 20210225
  26. SULFAMETHOXAZOLE\TRIMETHOPRIM [Concomitant]
     Active Substance: SULFAMETHOXAZOLE\TRIMETHOPRIM
     Dates: start: 20210409, end: 20210701
  27. PROGRAF [Concomitant]
     Active Substance: TACROLIMUS
     Route: 048
     Dates: start: 20201224, end: 20211217
  28. MEROPENEM [Concomitant]
     Active Substance: MEROPENEM
     Indication: Pleural effusion
  29. MEROPENEM [Concomitant]
     Active Substance: MEROPENEM
     Indication: Streptococcal infection
  30. VANCOMYCIN [Concomitant]
     Active Substance: VANCOMYCIN
     Indication: Pleural effusion
  31. VANCOMYCIN [Concomitant]
     Active Substance: VANCOMYCIN
     Indication: Streptococcal infection
  32. MICAFUNGIN [Concomitant]
     Active Substance: MICAFUNGIN
     Indication: Pleural effusion
  33. MICAFUNGIN [Concomitant]
     Active Substance: MICAFUNGIN
     Indication: Streptococcal infection

REACTIONS (4)
  - Ascites [Recovered/Resolved]
  - Diarrhoea [Recovered/Resolved]
  - Cytomegalovirus test positive [Recovered/Resolved]
  - Pleural effusion [Recovered/Resolved]

NARRATIVE: CASE EVENT DATE: 20201211
